FAERS Safety Report 6898523-9 (Version None)
Quarter: 2010Q3

REPORT INFORMATION
  Report Type: 
  Country: None (occurrence: None)
  Receive Date: 20100729
  Receipt Date: 20100719
  Transmission Date: 20110219
  Serious: Yes (Other)
  Sender: FDA-Public Use
  Company Number: DSA_43551_2010

PATIENT
  Sex: Female

DRUGS (1)
  1. APLENZIN [Suspect]
     Indication: BIPOLAR DISORDER
     Dosage: 522 MG QD
     Dates: start: 20090101

REACTIONS (6)
  - ALTERED STATE OF CONSCIOUSNESS [None]
  - ANGER [None]
  - CONCUSSION [None]
  - IMPRISONMENT [None]
  - LOSS OF CONSCIOUSNESS [None]
  - STRESS [None]
